FAERS Safety Report 8307403-3 (Version None)
Quarter: 2012Q2

REPORT INFORMATION
  Report Type: 
  Country: None (occurrence: None)
  Receive Date: 20120424
  Receipt Date: 20120418
  Transmission Date: 20120825
  Serious: Yes (Other)
  Sender: FDA-Public Use
  Company Number: US-PFIZER INC-2012097161

PATIENT
  Sex: Female
  Weight: 77 kg

DRUGS (8)
  1. PREMARIN [Suspect]
     Dosage: 0.625 MG, DAILY
     Route: 067
     Dates: start: 20120101
  2. LASIX [Concomitant]
     Indication: HYPERTENSION
     Dosage: UNK
  3. PREMARIN [Suspect]
     Indication: VULVOVAGINAL DRYNESS
     Dosage: UNK
     Dates: start: 19900101
  4. DYAZIDE [Concomitant]
     Indication: HYPERTENSION
     Dosage: UNK
     Dates: start: 19700101
  5. POTASSIUM [Concomitant]
     Dosage: UNK,2X/DAY
     Route: 048
  6. LISINOPRIL [Concomitant]
     Indication: HYPERTENSION
     Dosage: UNK
  7. LIPITOR [Suspect]
     Indication: HYPERTENSION
     Dosage: 40 MG, DAILY
  8. VENTOLIN [Concomitant]
     Indication: ASTHMA
     Dosage: UNK,AS NEEDED

REACTIONS (3)
  - ARTHRITIS [None]
  - MENORRHAGIA [None]
  - DRUG PRESCRIBING ERROR [None]
